FAERS Safety Report 24427122 (Version 2)
Quarter: 2024Q4

REPORT INFORMATION
  Report Type: Report from Study
  Country: US (occurrence: US)
  Receive Date: 20241011
  Receipt Date: 20241031
  Transmission Date: 20250115
  Serious: Yes (Hospitalization, Other)
  Sender: SAREPTA THERAPEUTICS
  Company Number: US-SAREPTA THERAPEUTICS INC.-SRP2024-005086

PATIENT
  Sex: Male
  Weight: 15.6 kg

DRUGS (1)
  1. ELEVIDYS [Suspect]
     Active Substance: DELANDISTROGENE MOXEPARVOVEC-ROKL
     Indication: Product used for unknown indication
     Dosage: 160 MILLILITER, SINGLE
     Route: 042
     Dates: start: 20240815, end: 20240815

REACTIONS (2)
  - Immune-mediated hepatitis [Unknown]
  - Hepatic enzyme increased [Not Recovered/Not Resolved]
